FAERS Safety Report 17288298 (Version 1)
Quarter: 2020Q1

REPORT INFORMATION
  Report Type: Spontaneous
  Country: GB (occurrence: GB)
  Receive Date: 20200120
  Receipt Date: 20200120
  Transmission Date: 20200409
  Serious: Yes (Other)
  Sender: FDA-Public Use
  Company Number: GB-TEVA-2020-GB-1169612

PATIENT
  Age: 34 Year
  Sex: Female
  Weight: 64 kg

DRUGS (5)
  1. CLENIL MODULITE [Concomitant]
     Active Substance: BECLOMETHASONE DIPROPIONATE
     Dosage: VIA SPACER. 2 DOSAGE FORMS 1 DAYS
     Route: 055
     Dates: start: 20190312, end: 20191211
  2. PREDNISOLONE. [Suspect]
     Active Substance: PREDNISOLONE
     Dosage: 5 MG
     Dates: start: 20191211
  3. SALBUTAMOL [Concomitant]
     Active Substance: ALBUTEROL
     Dosage: VIA SPACER , 2 DOSAGE FORMS
     Route: 055
     Dates: start: 20190204
  4. BETNOVATE [Concomitant]
     Active Substance: BETAMETHASONE
     Dosage: 1 DOSAGE FORMS 1 DAYS
     Dates: start: 20191211
  5. OILATUM [Concomitant]
     Dosage: 4 DOSAGE FORMS 1 DAYS
     Dates: start: 20191211

REACTIONS (1)
  - Hypersensitivity [Recovered/Resolved]

NARRATIVE: CASE EVENT DATE: 20191211
